FAERS Safety Report 5256042-X (Version None)
Quarter: 2007Q1

REPORT INFORMATION
  Report Type: 
  Country: None (occurrence: None)
  Receive Date: 20070302
  Receipt Date: 20070302
  Transmission Date: 20070707
  Serious: Yes (Hospitalization)
  Sender: FDA-Public Use
  Company Number: None

PATIENT
  Sex: Male
  Weight: 102 kg

DRUGS (1)
  1. MAXIPIME [Suspect]
     Indication: PSEUDOMONAS INFECTION
     Dosage: 2G/100M/NS BID IV
     Route: 042
     Dates: start: 20070109, end: 20070128

REACTIONS (4)
  - DISORIENTATION [None]
  - FALL [None]
  - FOOT FRACTURE [None]
  - MYOCLONUS [None]
